FAERS Safety Report 11869954 (Version 1)
Quarter: 2015Q4

REPORT INFORMATION
  Report Type: Spontaneous
  Country: AR (occurrence: AR)
  Receive Date: 20151228
  Receipt Date: 20151228
  Transmission Date: 20160305
  Serious: Yes (Other)
  Sender: FDA-Public Use
  Company Number: AR-ABBVIE-15K-007-1526908-00

PATIENT
  Age: 45 Year
  Sex: Female

DRUGS (5)
  1. FOLIC ACID. [Concomitant]
     Active Substance: FOLIC ACID
     Indication: PRODUCT USED FOR UNKNOWN INDICATION
     Dates: start: 2004, end: 2012
  2. METHOTREXATE [Concomitant]
     Active Substance: METHOTREXATE
     Indication: PRODUCT USED FOR UNKNOWN INDICATION
     Dates: start: 2004, end: 201204
  3. HUMIRA [Suspect]
     Active Substance: ADALIMUMAB
     Indication: UVEITIS
     Route: 058
     Dates: start: 201212, end: 201501
  4. METHOTREXATE [Concomitant]
     Active Substance: METHOTREXATE
     Dates: start: 201204
  5. HUMIRA [Suspect]
     Active Substance: ADALIMUMAB
     Indication: PSORIATIC ARTHROPATHY
     Route: 058
     Dates: start: 201204, end: 201212

REACTIONS (7)
  - Blindness unilateral [Unknown]
  - Uveitis [Not Recovered/Not Resolved]
  - Uveitis [Unknown]
  - Psoriasis [Unknown]
  - Arthritis [Not Recovered/Not Resolved]
  - Drug ineffective [Unknown]
  - Uveitis [Recovered/Resolved]

NARRATIVE: CASE EVENT DATE: 2012
